FAERS Safety Report 26090223 (Version 1)
Quarter: 2025Q4

REPORT INFORMATION
  Report Type: Spontaneous
  Country: US (occurrence: US)
  Receive Date: 20251126
  Receipt Date: 20251126
  Transmission Date: 20260118
  Serious: No
  Sender: ASTELLAS
  Company Number: US-ASTELLAS-2025-AER-064390

PATIENT
  Sex: Male

DRUGS (2)
  1. XTANDI [Suspect]
     Active Substance: ENZALUTAMIDE
     Indication: Product used for unknown indication
     Dosage: FIRST DOSE
     Route: 050
  2. XTANDI [Suspect]
     Active Substance: ENZALUTAMIDE
     Dosage: SECOND DOSE
     Route: 050

REACTIONS (2)
  - Malaise [Unknown]
  - Tremor [Unknown]
